FAERS Safety Report 21978203 (Version 1)
Quarter: 2023Q1

REPORT INFORMATION
  Report Type: Report from Study
  Country: US (occurrence: US)
  Receive Date: 20230210
  Receipt Date: 20230210
  Transmission Date: 20230417
  Serious: Yes (Other)
  Sender: FDA-Public Use
  Company Number: US-ABBVIE-4302836

PATIENT
  Sex: Male

DRUGS (2)
  1. VENCLEXTA [Suspect]
     Active Substance: VENETOCLAX
     Indication: Waldenstrom^s macroglobulinaemia
     Dosage: FORM STRENGTH 100 MILLIGRAM
     Route: 048
  2. RITUXAN [Suspect]
     Active Substance: RITUXIMAB
     Indication: Product used for unknown indication
     Dosage: VIAL-10MGLML (10ML)
     Route: 065

REACTIONS (4)
  - Epilepsy [Unknown]
  - Drug hypersensitivity [Unknown]
  - Illness [Unknown]
  - Off label use [Unknown]
